FAERS Safety Report 24054618 (Version 1)
Quarter: 2024Q3

REPORT INFORMATION
  Report Type: Spontaneous
  Country: IT (occurrence: IT)
  Receive Date: 20240705
  Receipt Date: 20240705
  Transmission Date: 20241017
  Serious: Yes (Death, Hospitalization, Other)
  Sender: NEXUS PHARMACEUTICALS
  Company Number: IT-Nexus Pharma-000289

PATIENT
  Age: 80 Year
  Sex: Male

DRUGS (1)
  1. FLUORESCEIN [Suspect]
     Active Substance: FLUORESCEIN
     Indication: Retinal vein thrombosis
     Dosage: SODIUM FLUORESCEIN (20% SOLUTION)
     Route: 042

REACTIONS (2)
  - Kounis syndrome [Fatal]
  - Drug hypersensitivity [Fatal]
